FAERS Safety Report 10429730 (Version 3)
Quarter: 2015Q2

REPORT INFORMATION
  Report Type: Report from Study
  Country: US (occurrence: US)
  Receive Date: 20140904
  Receipt Date: 20150408
  Transmission Date: 20150821
  Serious: No
  Sender: FDA-Public Use
  Company Number: US-AMGEN INC.-USASP2014062136

PATIENT
  Age: 55 Year
  Sex: Male

DRUGS (1)
  1. ENBREL [Suspect]
     Active Substance: ETANERCEPT
     Indication: RHEUMATOID ARTHRITIS
     Dosage: 50 MG, QWK
     Route: 065
     Dates: start: 20140523

REACTIONS (7)
  - Musculoskeletal pain [Not Recovered/Not Resolved]
  - Incorrect dose administered [Recovered/Resolved]
  - Pain in extremity [Not Recovered/Not Resolved]
  - Immune system disorder [Recovered/Resolved]
  - Arthralgia [Not Recovered/Not Resolved]
  - Paronychia [Not Recovered/Not Resolved]
  - Impaired healing [Recovered/Resolved]

NARRATIVE: CASE EVENT DATE: 20140523
